FAERS Safety Report 24548665 (Version 1)
Quarter: 2024Q4

REPORT INFORMATION
  Report Type: Spontaneous
  Country: US (occurrence: None)
  Receive Date: 20241023
  Receipt Date: 20241023
  Transmission Date: 20250114
  Serious: Yes (Hospitalization)
  Sender: Public
  Company Number: None

PATIENT
  Age: 67 Year
  Sex: Male
  Weight: 129 kg

DRUGS (2)
  1. LISINOPRIL [Suspect]
     Active Substance: LISINOPRIL
     Indication: Hypertension
     Dosage: FREQUENCY : DAILY;?
     Route: 048
  2. DIPHTHERIA AND TETANUS TOXOIDS AND PERTUSSIS VACCINE [Suspect]
     Active Substance: DIPHTHERIA AND TETANUS TOXOIDS AND PERTUSSIS VACCINE
     Indication: Immunisation
     Dosage: OTHER FREQUENCY : ONCE;?
     Route: 030
     Dates: start: 20240523, end: 20240523

REACTIONS (7)
  - Angioedema [None]
  - Rash [None]
  - Urticaria [None]
  - Lip swelling [None]
  - Therapy interrupted [None]
  - Urticaria [None]
  - Swelling [None]

NARRATIVE: CASE EVENT DATE: 20240524
